FAERS Safety Report 7640208-5 (Version None)
Quarter: 2011Q3

REPORT INFORMATION
  Report Type: 
  Country: None (occurrence: None)
  Receive Date: 20110728
  Receipt Date: 20091130
  Transmission Date: 20111222
  Serious: Yes (Death, Other)
  Sender: FDA-Public Use
  Company Number: US-BAYER-200941085NA

PATIENT
  Age: 71 Year
  Sex: Male
  Weight: 90.703 kg

DRUGS (17)
  1. ENOXAPARIN [Concomitant]
     Route: 042
  2. PROTAMINE SULFATE [Concomitant]
     Route: 042
  3. PANTOPRAZOLE [Concomitant]
     Dosage: 40MG/10ML
     Route: 042
  4. LORAZEPAM [Concomitant]
     Route: 042
  5. CEFAZOLIN [Concomitant]
     Route: 042
  6. PROPOFOL [Concomitant]
     Route: 042
  7. MORPHINE [Concomitant]
     Route: 042
  8. HALOPERIDOL [Concomitant]
     Route: 042
  9. TRASYLOL [Suspect]
     Indication: ECHOCARDIOGRAM
     Dosage: 200 ML OVER 30 MINUTES PUMP PRIME
     Dates: start: 20050616
  10. HEPARIN [Concomitant]
     Route: 042
  11. NAFCILLIN [Concomitant]
     Dosage: 2 G, UNK
     Route: 042
  12. FUROSEMIDE [Concomitant]
     Route: 042
  13. TRASYLOL [Suspect]
     Indication: AORTIC VALVE REPLACEMENT
     Dosage: 50ML/HR INFUSION
     Route: 042
     Dates: start: 20050616
  14. ZIAC [Concomitant]
     Dosage: 10/6.25MG
     Route: 048
  15. LORTAB [Concomitant]
     Dosage: 5/500MG
     Route: 048
  16. ESMOLOL [Concomitant]
     Route: 042
  17. FENTANYL [Concomitant]
     Route: 042

REACTIONS (12)
  - ANXIETY [None]
  - RENAL IMPAIRMENT [None]
  - RENAL INJURY [None]
  - RENAL FAILURE [None]
  - STRESS [None]
  - UNEVALUABLE EVENT [None]
  - ANHEDONIA [None]
  - DEATH [None]
  - FEAR [None]
  - PAIN [None]
  - EMOTIONAL DISTRESS [None]
  - INJURY [None]
